FAERS Safety Report 7185623-1 (Version None)
Quarter: 2010Q4

REPORT INFORMATION
  Report Type: 
  Country: None (occurrence: None)
  Receive Date: 20101222
  Receipt Date: 20101216
  Transmission Date: 20110411
  Serious: Yes (Other)
  Sender: FDA-Public Use
  Company Number: US-US-EMD SERONO, INC.-7031520

PATIENT
  Sex: Female

DRUGS (5)
  1. REBIF [Suspect]
     Indication: MULTIPLE SCLEROSIS
     Dates: start: 20020101
  2. REBIF [Suspect]
     Dates: start: 20040101
  3. REBIF [Suspect]
     Route: 058
  4. REBIF [Suspect]
     Route: 058
     Dates: start: 20100101
  5. COPAXONE [Concomitant]
     Dates: start: 20070101, end: 20100101

REACTIONS (3)
  - INJECTION SITE ERYTHEMA [None]
  - THYROID DISORDER [None]
  - TYPE 1 DIABETES MELLITUS [None]
